FAERS Safety Report 11896288 (Version 1)
Quarter: 2016Q1

REPORT INFORMATION
  Report Type: Spontaneous
  Country: US (occurrence: US)
  Receive Date: 20160107
  Receipt Date: 20160107
  Transmission Date: 20160526
  Serious: Yes (Other)
  Sender: FDA-Public Use
  Company Number: US-ROCHE-1515929

PATIENT
  Age: 72 Year
  Sex: Male
  Weight: 69.92 kg

DRUGS (2)
  1. RITUXAN [Suspect]
     Active Substance: RITUXIMAB
     Indication: LYMPHOMA
     Route: 042
     Dates: start: 20141229, end: 20141229
  2. BENADRYL [Concomitant]
     Active Substance: DIPHENHYDRAMINE HYDROCHLORIDE
     Dosage: INDICATION: ANTI HISTAMINE?ADMINISTERED PRIOR TO RITUXAN
     Route: 042
     Dates: start: 20141229, end: 20141229

REACTIONS (1)
  - Tongue oedema [Recovered/Resolved]

NARRATIVE: CASE EVENT DATE: 20141229
